FAERS Safety Report 23756139 (Version 3)
Quarter: 2024Q2

REPORT INFORMATION
  Report Type: Spontaneous
  Country: US (occurrence: US)
  Receive Date: 20240418
  Receipt Date: 20240603
  Transmission Date: 20240715
  Serious: No
  Sender: FDA-Public Use
  Company Number: US-IPSEN Group, Research and Development-2024-06014

PATIENT
  Age: 14 Year
  Sex: Female
  Weight: 44 kg

DRUGS (14)
  1. TAZVERIK [Suspect]
     Active Substance: TAZEMETOSTAT HYDROBROMIDE
     Indication: Adrenal gland cancer
     Dosage: 800 MG TWICE DAILY
     Route: 048
     Dates: start: 20240329
  2. TAZVERIK [Suspect]
     Active Substance: TAZEMETOSTAT HYDROBROMIDE
     Indication: Off label use
  3. AMLODIPINE [Concomitant]
     Active Substance: AMLODIPINE BESYLATE
  4. CLINDAMYCIN PHOSPHATE [Concomitant]
     Active Substance: CLINDAMYCIN PHOSPHATE
  5. DIPHENHYDRAMINE [Concomitant]
     Active Substance: DIPHENHYDRAMINE
  6. DRONABINOL [Concomitant]
     Active Substance: DRONABINOL
  7. ESCITALOPRAM [Concomitant]
     Active Substance: ESCITALOPRAM OXALATE
  8. VITAMIN D3 [Concomitant]
     Active Substance: CHOLECALCIFEROL
  9. LIDOCAINE\PRILOCAINE [Concomitant]
     Active Substance: LIDOCAINE\PRILOCAINE
  10. MEGESTROL [Concomitant]
     Active Substance: MEGESTROL
  11. OLANZAPINE [Concomitant]
     Active Substance: OLANZAPINE
  12. ONDANSETRON [Concomitant]
     Active Substance: ONDANSETRON
  13. SCOPOLAMINE [Concomitant]
     Active Substance: SCOPOLAMINE
     Dosage: PATCH
  14. SOLU-CORTEF [Concomitant]
     Active Substance: HYDROCORTISONE SODIUM SUCCINATE
     Dosage: PATCH

REACTIONS (9)
  - Disease progression [Unknown]
  - Abdominal pain upper [Recovered/Resolved]
  - Initial insomnia [Recovered/Resolved]
  - Nausea [Recovered/Resolved]
  - Nausea [Recovering/Resolving]
  - Initial insomnia [Recovering/Resolving]
  - Feeling hot [Recovering/Resolving]
  - Off label use [Unknown]
  - Off label use [Unknown]
